FAERS Safety Report 5266757-5 (Version None)
Quarter: 2007Q1

REPORT INFORMATION
  Report Type: 
  Country: None (occurrence: None)
  Receive Date: 20070312
  Receipt Date: 20070227
  Transmission Date: 20070707
  Serious: Yes (Other)
  Sender: FDA-Public Use
  Company Number: 2007SP003668

PATIENT
  Sex: Male

DRUGS (2)
  1. ASMANEX TWISTHALER [Suspect]
     Indication: DRUG USE FOR UNKNOWN INDICATION
     Dosage: 220 MCG; UNK; PO
     Route: 048
  2. FORADIL [Suspect]
     Indication: DRUG USE FOR UNKNOWN INDICATION

REACTIONS (4)
  - CONVULSION [None]
  - HEAD INJURY [None]
  - LOSS OF CONSCIOUSNESS [None]
  - TREMOR [None]
